FAERS Safety Report 4491298-2 (Version None)
Quarter: 2004Q4

REPORT INFORMATION
  Report Type: 
  Country: None (occurrence: None)
  Receive Date: 20041101
  Receipt Date: 20041101
  Transmission Date: 20050328
  Serious: Yes (Life-Threatening)
  Sender: FDA-Public Use
  Company Number: None

PATIENT
  Age: 73 Year
  Sex: Male
  Weight: 81 kg

DRUGS (16)
  1. WARFARIN SODIUM [Suspect]
     Indication: PERIPHERAL VASCULAR DISORDER
     Dosage: 5 MG EACH DAY ORAL
     Route: 048
     Dates: start: 20030801, end: 20030827
  2. FLUCONAZOLE [Suspect]
     Indication: ORAL CANDIDIASIS
     Dosage: ORAL
     Route: 048
     Dates: start: 20040822, end: 20040828
  3. FLUCONAZOLE [Suspect]
     Indication: PROPHYLAXIS
     Dosage: ORAL
     Route: 048
     Dates: start: 20040822, end: 20040828
  4. FLUCONAZOLE [Concomitant]
  5. WARFARIN SODIUM [Concomitant]
  6. CARVEDIOLOL [Concomitant]
  7. DOXEPIN HCL [Concomitant]
  8. FUROSEMIDE [Concomitant]
  9. GLIPIZIDE [Concomitant]
  10. LISINOPRIL [Concomitant]
  11. METOLAZONE [Concomitant]
  12. TERAZOSIN HCL [Concomitant]
  13. TESTOSTERONE [Concomitant]
  14. PREVACID [Concomitant]
  15. SIMVASTATIN [Concomitant]
  16. PENTOXIFYLLINE [Concomitant]

REACTIONS (4)
  - CARDIOMYOPATHY [None]
  - GASTROINTESTINAL HAEMORRHAGE [None]
  - INTERNATIONAL NORMALISED RATIO INCREASED [None]
  - MYOCARDIAL INFARCTION [None]
